FAERS Safety Report 7055377-8 (Version None)
Quarter: 2010Q4

REPORT INFORMATION
  Report Type: 
  Country: None (occurrence: None)
  Receive Date: 20101021
  Receipt Date: 20101008
  Transmission Date: 20110411
  Serious: Yes (Death, Hospitalization, Disabling, Other)
  Sender: FDA-Public Use
  Company Number: PHHY2009JP07276

PATIENT
  Sex: Male

DRUGS (20)
  1. EXJADE [Suspect]
     Indication: APLASTIC ANAEMIA
     Dosage: 500 MG, QD
     Route: 048
     Dates: start: 20080618
  2. EXJADE [Suspect]
     Indication: IRON OVERLOAD
     Dosage: 500 MG
     Route: 048
     Dates: start: 20081218
  3. EXJADE [Suspect]
     Dosage: 500 MG, UNK
     Route: 048
     Dates: end: 20090825
  4. NEORAL [Suspect]
     Indication: APLASTIC ANAEMIA
     Dosage: 150 MG, QD
     Route: 048
     Dates: start: 20080618, end: 20081118
  5. NEORAL [Suspect]
     Dosage: 100 MG/DAY
     Route: 048
     Dates: start: 20081119, end: 20100508
  6. PLATELETS [Concomitant]
     Dosage: 10 UNITS EVERY WEEK
     Dates: start: 20080618, end: 20090617
  7. RED BLOOD CELLS, CONCENTRATED [Concomitant]
     Dosage: 2 UNITS EVERY TWO WEEKS
  8. RED BLOOD CELLS, CONCENTRATED [Concomitant]
     Dosage: 2 UNITS EVERY THREE WEEKS
     Dates: start: 20081224, end: 20090507
  9. RED BLOOD CELLS, CONCENTRATED [Concomitant]
     Dosage: 2 UNITS EVERY FOUR WEEKS
     Dates: start: 20090507, end: 20090603
  10. RED BLOOD CELLS, CONCENTRATED [Concomitant]
     Dosage: 2 UNITS
     Dates: start: 20090708
  11. RED BLOOD CELLS, CONCENTRATED [Concomitant]
     Dosage: 2 UNITS
     Dates: start: 20090827
  12. RED BLOOD CELLS, CONCENTRATED [Concomitant]
     Dosage: 2 UNITS
     Dates: start: 20091013
  13. RED BLOOD CELLS, CONCENTRATED [Concomitant]
     Dosage: 2 UNITS
     Dates: start: 20091029
  14. RED BLOOD CELLS, CONCENTRATED [Concomitant]
     Dosage: 2 UNITS
     Dates: start: 20100329
  15. RED BLOOD CELLS, CONCENTRATED [Concomitant]
     Dosage: 2 UNITS
     Dates: start: 20100421
  16. MUCOSTA [Concomitant]
     Indication: PROPHYLAXIS
     Dosage: 300 MG/DAY
     Route: 048
     Dates: start: 20080618, end: 20090617
  17. KALIMATE [Concomitant]
     Dosage: 15 G/DAY
     Route: 048
     Dates: start: 20080618, end: 20090617
  18. MAGNESIUM OXIDE [Concomitant]
     Indication: CONSTIPATION
     Dosage: 2 G/DAY
     Route: 048
     Dates: start: 20080618, end: 20090617
  19. GRAN [Concomitant]
     Indication: APLASTIC ANAEMIA
     Dosage: 300UG/DAY
     Route: 042
     Dates: start: 20080618, end: 20090617
  20. SOLU-CORTEF [Concomitant]
     Indication: PROPHYLAXIS
     Dosage: 100MG/DAY
     Route: 042
     Dates: start: 20080618, end: 20090617

REACTIONS (8)
  - BLOOD BILIRUBIN INCREASED [None]
  - BLOOD LACTATE DEHYDROGENASE INCREASED [None]
  - CARDIAC FAILURE CONGESTIVE [None]
  - HAEMOLYSIS [None]
  - HERPES ZOSTER [None]
  - MULTI-ORGAN FAILURE [None]
  - RENAL IMPAIRMENT [None]
  - VIITH NERVE PARALYSIS [None]
